FAERS Safety Report 5973690-X (Version None)
Quarter: 2008Q4

REPORT INFORMATION
  Report Type: 
  Country: None (occurrence: None)
  Receive Date: 20081201
  Receipt Date: 20081124
  Transmission Date: 20090506
  Serious: Yes (Hospitalization, Other)
  Sender: FDA-Public Use
  Company Number: CA-ROXANE LABORATORIES, INC.-2008-RO-00268RO

PATIENT
  Age: 80 Year
  Sex: Female

DRUGS (11)
  1. CITALOPRAM HYDROBROMIDE [Suspect]
     Indication: ANXIETY
     Dosage: 10MG
  2. CITALOPRAM HYDROBROMIDE [Suspect]
     Dosage: 20MG
  3. DIGOXIN [Suspect]
     Indication: ATRIAL FIBRILLATION
  4. AMLODIPINE [Suspect]
     Indication: ATRIAL FIBRILLATION
     Dosage: 2.5MG
     Route: 048
  5. PROPAFENONE HCL [Suspect]
     Indication: ATRIAL FIBRILLATION
     Dosage: 900MG
  6. ISOSORBIDE DINITRATE [Suspect]
     Dosage: 90MG
     Route: 048
  7. SPIRONLACTONE/HYDROCHLOROTHIAZIDE [Suspect]
     Route: 048
  8. SIMVASTATIN [Suspect]
     Dosage: 5MG
     Route: 048
  9. ACETYLSALICYLIC ACID SRT [Suspect]
     Dosage: 325MG
     Route: 048
  10. NITROGLYCERIN [Suspect]
     Indication: ATRIAL FIBRILLATION
  11. WARFARIN SODIUM [Suspect]
     Indication: ATRIAL FIBRILLATION
     Dosage: 5MG
     Route: 048

REACTIONS (8)
  - ATRIAL FIBRILLATION [None]
  - BRADYCARDIA [None]
  - CONTUSION [None]
  - DELIRIUM [None]
  - DEMENTIA [None]
  - DISTURBANCE IN ATTENTION [None]
  - DRUG INTERACTION [None]
  - FALL [None]
